FAERS Safety Report 13945781 (Version 1)
Quarter: 2017Q3

REPORT INFORMATION
  Report Type: Spontaneous
  Country: GB (occurrence: GB)
  Receive Date: 20170907
  Receipt Date: 20170907
  Transmission Date: 20171128
  Serious: Yes (Other)
  Sender: FDA-Public Use
  Company Number: GB-TORRENT-00015567

PATIENT
  Age: 46 Year
  Sex: Female

DRUGS (5)
  1. MODECATE [Suspect]
     Active Substance: FLUPHENAZINE DECANOATE
  2. OLANZAPINE. [Suspect]
     Active Substance: OLANZAPINE
  3. PIPOTIAZINE PALMITATE [Suspect]
     Active Substance: PIPOTIAZINE PALMITATE
  4. RISPERIDONE. [Suspect]
     Active Substance: RISPERIDONE
  5. HALOPERIDOL. [Suspect]
     Active Substance: HALOPERIDOL

REACTIONS (2)
  - Suicidal ideation [Recovered/Resolved]
  - Hallucination [Recovered/Resolved]
